FAERS Safety Report 4645108-0 (Version None)
Quarter: 2005Q2

REPORT INFORMATION
  Report Type: 
  Country: None (occurrence: None)
  Receive Date: 20050422
  Receipt Date: 20050414
  Transmission Date: 20051028
  Serious: Yes (Other)
  Sender: FDA-Public Use
  Company Number: 2005061182

PATIENT
  Age: 75 Year
  Sex: Female
  Weight: 73.9363 kg

DRUGS (6)
  1. BENADRYL [Suspect]
     Indication: EYE IRRITATION
     Dosage: ONE TAB ONCE, ORAL
     Route: 048
     Dates: start: 20050414, end: 20050414
  2. BENADRYL [Suspect]
     Indication: EYE IRRITATION
     Dosage: ONE SMALL APPLICATION, TOPICAL
     Route: 061
     Dates: start: 20050414, end: 20050414
  3. RAMIPRIL [Concomitant]
  4. LIOTHYRONINE SODIUM [Concomitant]
  5. PRAVASTATIN SODIUM [Concomitant]
  6. RALOXIFENE HCL [Concomitant]

REACTIONS (2)
  - EYE SWELLING [None]
  - SWELLING FACE [None]
